FAERS Safety Report 5974411-7 (Version None)
Quarter: 2008Q4

REPORT INFORMATION
  Report Type: 
  Country: None (occurrence: None)
  Receive Date: 20081128
  Receipt Date: 20081117
  Transmission Date: 20090506
  Serious: Yes (Death, Hospitalization)
  Sender: FDA-Public Use
  Company Number: 005024

PATIENT
  Age: 50 Year
  Sex: Female

DRUGS (6)
  1. BUSULFEX [Suspect]
     Indication: STEM CELL TRANSPLANT
     Dosage: 6.67 ML, QID INTRAVENOUS
     Route: 042
     Dates: start: 20070416, end: 20070419
  2. ENDOXAN NET (CYCLOPHOSPHAMIDE) [Suspect]
     Dosage: 3000 MG INTRAVENOUS
     Route: 042
     Dates: start: 20070421, end: 20070422
  3. METHOTREXATE [Suspect]
  4. DEPAKENE [Concomitant]
  5. FILGRASTIM (FILGRASTIM) [Concomitant]
  6. TACROLIMUS [Concomitant]

REACTIONS (17)
  - ABDOMINAL PAIN [None]
  - ACUTE GRAFT VERSUS HOST DISEASE [None]
  - ACUTE MYELOID LEUKAEMIA [None]
  - ANOREXIA [None]
  - BONE MARROW TRANSPLANT [None]
  - CONSTIPATION [None]
  - DIARRHOEA [None]
  - FEBRILE NEUTROPENIA [None]
  - HEADACHE [None]
  - HYPOKALAEMIA [None]
  - INFECTION [None]
  - MALAISE [None]
  - MULTI-ORGAN FAILURE [None]
  - NAUSEA [None]
  - PLEURAL EFFUSION [None]
  - STOMATITIS [None]
  - VOMITING [None]
